FAERS Safety Report 6773941-8 (Version None)
Quarter: 2010Q2

REPORT INFORMATION
  Report Type: 
  Country: None (occurrence: None)
  Receive Date: 20100617
  Receipt Date: 20100603
  Transmission Date: 20101027
  Serious: Yes (Hospitalization)
  Sender: FDA-Public Use
  Company Number: PHHY2010JP37159

PATIENT
  Sex: Male
  Weight: 68 kg

DRUGS (11)
  1. DIOVAN [Suspect]
     Indication: HYPERTENSION
     Dosage: 80 MG, QD
     Route: 048
     Dates: start: 20080229, end: 20081218
  2. DIOVAN [Suspect]
     Dosage: 160 MG DAILY
     Route: 048
     Dates: start: 20081219
  3. AMLODIN [Concomitant]
     Indication: HYPERTENSION
     Dosage: 2.5 MG, UNK
     Route: 048
     Dates: start: 20071030
  4. AMLODIN [Concomitant]
     Dosage: 5.0 MG, UNK
     Route: 048
  5. AMLODIN [Concomitant]
     Dosage: 2.5 MG, UNK
     Route: 048
  6. NORVASC [Concomitant]
     Dosage: 5.0 MG, UNK
     Route: 048
     Dates: start: 20081028
  7. LAC B [Concomitant]
     Dosage: 3.0 MG, UNK
     Route: 048
     Dates: start: 20090421
  8. BIO THREE [Concomitant]
     Dosage: 6 DF, UNK
     Route: 048
     Dates: start: 20090224, end: 20090323
  9. PROMAC [Concomitant]
     Dosage: 1 DF, UNK
     Route: 048
     Dates: start: 20070319
  10. PARIET [Concomitant]
     Dosage: 10 MG, UNK
     Route: 048
     Dates: start: 20070319
  11. HANGE-SHASHIN-TO [Concomitant]
     Dosage: 7.5 G, UNK
     Route: 048
     Dates: start: 20090224, end: 20090314

REACTIONS (5)
  - COLON POLYPECTOMY [None]
  - COLONIC POLYP [None]
  - DIARRHOEA [None]
  - HEPATIC FUNCTION ABNORMAL [None]
  - HYPERTRIGLYCERIDAEMIA [None]
